FAERS Safety Report 16780803 (Version 2)
Quarter: 2021Q2

REPORT INFORMATION
  Report Type: Report from Study
  Country: JP (occurrence: JP)
  Receive Date: 20190906
  Receipt Date: 20210427
  Transmission Date: 20210716
  Serious: Yes (Other)
  Sender: FDA-Public Use
  Company Number: JP-JNJFOC-20190839791

PATIENT
  Age: 39 Year
  Sex: Male
  Weight: 41.4 kg

DRUGS (17)
  1. STELARA [Suspect]
     Active Substance: USTEKINUMAB
     Dosage: USTEKINUMAB(GENETICAL RECOMBINATION):45MG
     Route: 058
     Dates: start: 20191021, end: 20191021
  2. STELARA [Suspect]
     Active Substance: USTEKINUMAB
     Dosage: USTEKINUMAB(GENETICAL RECOMBINATION):45MG
     Route: 058
     Dates: start: 20200217, end: 20200217
  3. PENTASA [Concomitant]
     Active Substance: MESALAMINE
     Indication: CROHN^S DISEASE
     Route: 048
  4. ZONISAMIDE. [Concomitant]
     Active Substance: ZONISAMIDE
     Indication: PRODUCT USED FOR UNKNOWN INDICATION
     Dosage: UNKNOWN
     Route: 048
  5. STELARA [Suspect]
     Active Substance: USTEKINUMAB
     Dosage: USTEKINUMAB(GENETICAL RECOMBINATION):45MG
     Route: 058
     Dates: start: 20200413, end: 20200413
  6. STELARA [Suspect]
     Active Substance: USTEKINUMAB
     Indication: CROHN^S DISEASE
     Dosage: USTEKINUMAB(GENETICAL RECOMBINATION):130MG
     Route: 042
     Dates: start: 20180213, end: 20180213
  7. STELARA [Suspect]
     Active Substance: USTEKINUMAB
     Indication: CROHN^S DISEASE
     Route: 058
     Dates: start: 20180702, end: 20180702
  8. STELARA [Suspect]
     Active Substance: USTEKINUMAB
     Indication: CROHN^S DISEASE
     Dosage: USTEKINUMAB(GENETICAL RECOMBINATION):45MG
     Route: 058
     Dates: start: 20190311, end: 20190311
  9. STELARA [Suspect]
     Active Substance: USTEKINUMAB
     Indication: CROHN^S DISEASE
     Route: 058
     Dates: start: 20181001, end: 20181001
  10. STELARA [Suspect]
     Active Substance: USTEKINUMAB
     Indication: CROHN^S DISEASE
     Dosage: USTEKINUMAB(GENETICAL RECOMBINATION):45MG
     Route: 058
     Dates: start: 20190617, end: 20190617
  11. STELARA [Suspect]
     Active Substance: USTEKINUMAB
     Indication: CROHN^S DISEASE
     Dosage: USTEKINUMAB(GENETICAL RECOMBINATION):45MG
     Route: 058
     Dates: start: 20180409, end: 20180409
  12. STELARA [Suspect]
     Active Substance: USTEKINUMAB
     Dosage: USTEKINUMAB(GENETICAL RECOMBINATION):45MG
     Route: 058
     Dates: start: 20191216, end: 20191216
  13. STELARA [Suspect]
     Active Substance: USTEKINUMAB
     Dosage: USTEKINUMAB(GENETICAL RECOMBINATION):45MG
     Route: 058
  14. CEFMETAZOLE SODIUM [Concomitant]
     Active Substance: CEFMETAZOLE SODIUM
     Indication: CROHN^S DISEASE
     Route: 065
     Dates: start: 20180919, end: 20180925
  15. STELARA [Suspect]
     Active Substance: USTEKINUMAB
     Indication: CROHN^S DISEASE
     Route: 058
     Dates: start: 20181217, end: 20181217
  16. STELARA [Suspect]
     Active Substance: USTEKINUMAB
     Dosage: USTEKINUMAB(GENETICAL RECOMBINATION):45MG
     Route: 058
     Dates: start: 20190822, end: 20190822
  17. PREDNISOLONE. [Concomitant]
     Active Substance: PREDNISOLONE
     Indication: CROHN^S DISEASE
     Route: 048
     Dates: start: 20180919, end: 20181022

REACTIONS (1)
  - Perirectal abscess [Recovering/Resolving]

NARRATIVE: CASE EVENT DATE: 201809
